FAERS Safety Report 5073971-0 (Version None)
Quarter: 2006Q3

REPORT INFORMATION
  Report Type: 
  Country: None (occurrence: None)
  Receive Date: 20060808
  Receipt Date: 20060802
  Transmission Date: 20061208
  Serious: Yes (Hospitalization)
  Sender: FDA-Public Use
  Company Number: 2006SE04214

PATIENT
  Age: 64 Year
  Sex: Female

DRUGS (6)
  1. ARIMIDEX [Suspect]
     Indication: BREAST CANCER FEMALE
     Route: 048
     Dates: start: 20060419, end: 20060512
  2. SANDIMMUNE [Interacting]
     Indication: PROPHYLAXIS
     Route: 048
     Dates: start: 20000101
  3. ADALAT [Concomitant]
  4. CALCIUM GLUCONATE [Concomitant]
  5. TROMBYL [Concomitant]
  6. PREDNISOLONE [Concomitant]

REACTIONS (3)
  - DRUG INTERACTION [None]
  - OEDEMA PERIPHERAL [None]
  - RENAL FAILURE [None]
